FAERS Safety Report 10012860 (Version 1)
Quarter: 2014Q1

REPORT INFORMATION
  Report Type: Spontaneous
  Country: GB (occurrence: GB)
  Receive Date: 20140314
  Receipt Date: 20140314
  Transmission Date: 20141002
  Serious: Yes (Other)
  Sender: FDA-Public Use
  Company Number: GB-PFIZER INC-2014074174

PATIENT
  Age: 47 Year
  Sex: Male
  Weight: 104 kg

DRUGS (6)
  1. CHAMPIX [Suspect]
     Dosage: UNK
     Dates: start: 20140131
  2. AMOXICILLIN [Concomitant]
     Dosage: UNK
     Dates: start: 20140131, end: 20140207
  3. BETAHISTINE [Concomitant]
     Dosage: UNK
     Dates: start: 20131105
  4. FLUTICASONE [Concomitant]
     Dosage: UNK
     Dates: start: 20131108
  5. PROCHLORPERAZINE [Concomitant]
     Dosage: UNK
     Dates: start: 20131126, end: 20131224
  6. VENTOLIN [Concomitant]
     Dosage: UNK
     Dates: start: 20131116, end: 20131214

REACTIONS (3)
  - Dizziness [Recovered/Resolved]
  - Condition aggravated [Unknown]
  - Meniere^s disease [Unknown]
